FAERS Safety Report 4789481-1 (Version None)
Quarter: 2005Q4

REPORT INFORMATION
  Report Type: 
  Country: None (occurrence: None)
  Receive Date: 20051006
  Receipt Date: 20050929
  Transmission Date: 20060501
  Serious: Yes (Death, Hospitalization)
  Sender: FDA-Public Use
  Company Number: US-JNJFOC-20051000259

PATIENT
  Sex: Male

DRUGS (2)
  1. CONCENTRATED INFANTS' TYLENOL PLUS COLD [Suspect]
  2. CONCENTRATED INFANTS' TYLENOL PLUS COLD [Suspect]

REACTIONS (3)
  - DYSPNOEA [None]
  - HEAD INJURY [None]
  - MENINGITIS [None]
